FAERS Safety Report 9162774 (Version 1)
Quarter: 2013Q1

REPORT INFORMATION
  Report Type: Spontaneous
  Country: US (occurrence: None)
  Receive Date: 20130313
  Receipt Date: 20130313
  Transmission Date: 20140127
  Serious: Yes (Hospitalization)
  Sender: FDA-Public Use
  Company Number: None

PATIENT
  Sex: Male
  Weight: 77.11 kg

DRUGS (1)
  1. SULFASALAZINE DELAYED-RELEASE [Suspect]
     Indication: RHEUMATOID ARTHRITIS
     Dosage: 500 MG 2 TAB  2 X DAY 2000 DAILY
     Dates: start: 20130211, end: 20130216

REACTIONS (2)
  - Rash [None]
  - Blister [None]
